FAERS Safety Report 22601278 (Version 1)
Quarter: 2023Q2

REPORT INFORMATION
  Report Type: Spontaneous
  Country: US (occurrence: US)
  Receive Date: 20230614
  Receipt Date: 20230614
  Transmission Date: 20230721
  Serious: No
  Sender: FDA-Public Use
  Company Number: US RIGEL Pharmaceuticals, INC - 2023FOS000199

PATIENT
  Age: 63 Year
  Sex: Male
  Weight: 74.921 kg

DRUGS (1)
  1. TAVALISSE [Suspect]
     Active Substance: FOSTAMATINIB
     Indication: Thrombocytopenia
     Dosage: 100 MG, QD, EVERY MORNING
     Route: 048
     Dates: start: 20220412

REACTIONS (3)
  - Platelet count increased [Unknown]
  - Diarrhoea [Unknown]
  - Off label use [Unknown]

NARRATIVE: CASE EVENT DATE: 20220412
